FAERS Safety Report 9138897 (Version 2)
Quarter: 2013Q2

REPORT INFORMATION
  Report Type: Spontaneous
  Country: US (occurrence: US)
  Receive Date: 20130305
  Receipt Date: 20130419
  Transmission Date: 20140414
  Serious: No
  Sender: FDA-Public Use
  Company Number: US-PFIZER INC-2013073078

PATIENT
  Age: 70 Year
  Sex: Female
  Weight: 81.63 kg

DRUGS (6)
  1. TIKOSYN [Suspect]
     Indication: ATRIAL FIBRILLATION
     Dosage: UNK
  2. ENOXAPARIN SODIUM [Suspect]
     Indication: CARDIAC PACEMAKER INSERTION
     Dosage: 100 MG/ML, UNK
     Dates: start: 201302
  3. ENOXAPARIN SODIUM [Suspect]
     Dosage: UNK
  4. NITROFUR [Interacting]
     Indication: URINARY TRACT INFECTION
     Dosage: UNK
     Dates: start: 201302
  5. METOPROLOL [Concomitant]
     Indication: ATRIAL FIBRILLATION
     Dosage: UNK
  6. COUMADIN [Concomitant]
     Indication: ATRIAL FIBRILLATION
     Dosage: UNK, 1X/DAY

REACTIONS (2)
  - Drug interaction [Not Recovered/Not Resolved]
  - Drug ineffective [Not Recovered/Not Resolved]
